FAERS Safety Report 14980599 (Version 1)
Quarter: 2018Q2

REPORT INFORMATION
  Report Type: Report from Study
  Country: JP (occurrence: JP)
  Receive Date: 20180606
  Receipt Date: 20180606
  Transmission Date: 20180711
  Serious: Yes (Other)
  Sender: FDA-Public Use
  Company Number: JP-MYLANLABS-2018M1038563

PATIENT
  Age: 74 Year
  Sex: Male

DRUGS (10)
  1. ETOPOSIDE. [Suspect]
     Active Substance: ETOPOSIDE
     Indication: ANGIOIMMUNOBLASTIC T-CELL LYMPHOMA
     Route: 065
  2. CYCLOPHOSPHAMIDE. [Suspect]
     Active Substance: CYCLOPHOSPHAMIDE
     Indication: ANGIOIMMUNOBLASTIC T-CELL LYMPHOMA
     Route: 065
  3. CARBOPLATIN. [Suspect]
     Active Substance: CARBOPLATIN
     Indication: ANGIOIMMUNOBLASTIC T-CELL LYMPHOMA
     Route: 065
  4. IFOSFAMIDE. [Suspect]
     Active Substance: IFOSFAMIDE
     Indication: ANGIOIMMUNOBLASTIC T-CELL LYMPHOMA
     Route: 065
  5. PREDNISONE. [Suspect]
     Active Substance: PREDNISONE
     Indication: ANGIOIMMUNOBLASTIC T-CELL LYMPHOMA
     Route: 065
  6. VINCRISTINE [Suspect]
     Active Substance: VINCRISTINE
     Indication: ANGIOIMMUNOBLASTIC T-CELL LYMPHOMA
     Route: 065
  7. GEMCITABINE [Suspect]
     Active Substance: GEMCITABINE\GEMCITABINE HYDROCHLORIDE
     Indication: ANGIOIMMUNOBLASTIC T-CELL LYMPHOMA
     Route: 065
  8. DOXORUBICIN [Suspect]
     Active Substance: DOXORUBICIN
     Indication: ANGIOIMMUNOBLASTIC T-CELL LYMPHOMA
     Route: 065
  9. DEXAMETHASONE. [Suspect]
     Active Substance: DEXAMETHASONE
     Indication: ANGIOIMMUNOBLASTIC T-CELL LYMPHOMA
     Route: 065
  10. CISPLATIN. [Suspect]
     Active Substance: CISPLATIN
     Indication: ANGIOIMMUNOBLASTIC T-CELL LYMPHOMA
     Route: 065

REACTIONS (2)
  - Epstein Barr virus positive mucocutaneous ulcer [Recovered/Resolved]
  - Skin ulcer [Recovered/Resolved]
